FAERS Safety Report 9873883 (Version 2)
Quarter: 2014Q1

REPORT INFORMATION
  Report Type: Other
  Country: US (occurrence: US)
  Receive Date: 20140206
  Receipt Date: 20140206
  Transmission Date: 20141002
  Serious: No
  Sender: FDA-Public Use
  Company Number: US-ACORDA-ACO_30817_2012

PATIENT
  Age: 47 Year
  Sex: Female

DRUGS (3)
  1. AMPYRA [Suspect]
     Indication: GAIT DISTURBANCE
     Dosage: 10 MG, BID
  2. AMPYRA [Suspect]
     Dosage: 10 MG, BID
  3. AVONEX [Concomitant]
     Indication: MULTIPLE SCLEROSIS
     Dosage: UNK

REACTIONS (6)
  - Gait disturbance [Not Recovered/Not Resolved]
  - Activities of daily living impaired [Unknown]
  - Tremor [Not Recovered/Not Resolved]
  - Influenza like illness [Recovered/Resolved]
  - Walking aid user [Not Recovered/Not Resolved]
  - Aphasia [Not Recovered/Not Resolved]
